FAERS Safety Report 8898987 (Version 1)
Quarter: 2012Q4

REPORT INFORMATION
  Report Type: 
  Country: US (occurrence: US)
  Receive Date: 20121108
  Receipt Date: 20121108
  Transmission Date: 20130627
  Serious: No
  Sender: FDA-Public Use
  Company Number: US-AMGEN-USASP2012027619

PATIENT
  Age: 41 Year
  Sex: Female
  Weight: 97.05 kg

DRUGS (6)
  1. ENBREL [Suspect]
     Indication: PRODUCT USED FOR UNKNOWN INDICATION
     Dosage: 50 mg, qwk
     Route: 058
  2. TRIAMTERENE/HCTZ [Concomitant]
  3. FOLIC ACID [Concomitant]
  4. IBUPROFEN [Concomitant]
     Dosage: 200 mg, UNK
  5. AMLODIPINE [Concomitant]
     Dosage: 2.5 mg, UNK
  6. OMEPRAZOLE [Concomitant]
     Dosage: 20 mg, UNK

REACTIONS (1)
  - Pain [Unknown]
